FAERS Safety Report 12797531 (Version 1)
Quarter: 2016Q3

REPORT INFORMATION
  Report Type: Spontaneous
  Country: FR (occurrence: FR)
  Receive Date: 20160930
  Receipt Date: 20160930
  Transmission Date: 20161109
  Serious: Yes (Death, Hospitalization)
  Sender: FDA-Public Use
  Company Number: FR-BAXTER-2016BAX048680

PATIENT
  Age: 38 Year
  Sex: Male

DRUGS (11)
  1. CARBOPLATIN HOSPIRA [Suspect]
     Active Substance: CARBOPLATIN
     Indication: TESTIS CANCER
     Dosage: DOSE: 200 MG/M2
     Route: 042
     Dates: start: 20160823, end: 20160824
  2. HOLOXAN 2000 MG, POUDRE POUR USAGE PARENT?RAL [Suspect]
     Active Substance: IFOSFAMIDE
     Indication: TESTIS CANCER
     Dosage: 2400 MG/M?
     Route: 042
     Dates: start: 20160822, end: 20160822
  3. SOLUPRED [Suspect]
     Active Substance: PREDNISOLONE
     Indication: PROPHYLAXIS
     Route: 048
     Dates: start: 20160822, end: 20160826
  4. ALOXI [Suspect]
     Active Substance: PALONOSETRON HYDROCHLORIDE
     Route: 042
     Dates: start: 20160824, end: 20160824
  5. PRIMPERAN [Suspect]
     Active Substance: METOCLOPRAMIDE HYDROCHLORIDE
     Indication: PROPHYLAXIS OF NAUSEA AND VOMITING
     Dosage: DOSAGE FORM: SCORED TABLETS
     Route: 048
     Dates: start: 20160822, end: 20160826
  6. CARBOPLATIN HOSPIRA [Suspect]
     Active Substance: CARBOPLATIN
     Dosage: DOSE: 200 MG/M2
     Route: 042
     Dates: start: 20160826, end: 20160826
  7. ETOPOSIDE MYLAN [Suspect]
     Active Substance: ETOPOSIDE
     Indication: TESTIS CANCER
     Dosage: DOSE: 150 MG/M2
     Route: 042
     Dates: start: 20160823, end: 20160826
  8. ALOXI [Suspect]
     Active Substance: PALONOSETRON HYDROCHLORIDE
     Indication: PROPHYLAXIS OF NAUSEA AND VOMITING
     Route: 042
     Dates: start: 20160822, end: 20160822
  9. HOLOXAN 2000 MG, POUDRE POUR USAGE PARENT?RAL [Suspect]
     Active Substance: IFOSFAMIDE
     Dosage: 2400 MG/M?
     Route: 042
     Dates: start: 20160824, end: 20160826
  10. MESNA EG [Suspect]
     Active Substance: MESNA
     Indication: PROPHYLAXIS
     Dosage: DOSE: 2880 MG/M2
     Route: 042
     Dates: start: 20160823, end: 20160826
  11. EMEND [Suspect]
     Active Substance: APREPITANT
     Indication: PROPHYLAXIS OF NAUSEA AND VOMITING
     Route: 048
     Dates: start: 20160822, end: 20160826

REACTIONS (13)
  - Polyuria [Recovered/Resolved]
  - Hypovolaemia [Unknown]
  - Pyrexia [Unknown]
  - Cardio-respiratory arrest [Unknown]
  - Acute kidney injury [Fatal]
  - Lung infection [Unknown]
  - Bone marrow failure [Fatal]
  - Diarrhoea [Fatal]
  - General physical health deterioration [Fatal]
  - Blood pressure decreased [Unknown]
  - Dehydration [Unknown]
  - Oxygen saturation decreased [Unknown]
  - Vomiting [Unknown]

NARRATIVE: CASE EVENT DATE: 20160824
